FAERS Safety Report 23260225 (Version 3)
Quarter: 2024Q3

REPORT INFORMATION
  Report Type: Spontaneous
  Country: US (occurrence: US)
  Receive Date: 20231204
  Receipt Date: 20240703
  Transmission Date: 20241017
  Serious: No
  Sender: BAUSCH AND LOMB
  Company Number: US-BAUSCHBL-2023BNL012320

PATIENT
  Age: 67 Year
  Sex: Male

DRUGS (7)
  1. LOTEMAX [Suspect]
     Active Substance: LOTEPREDNOL ETABONATE
     Indication: Eye inflammation
     Route: 047
     Dates: start: 2023
  2. LOTEMAX [Suspect]
     Active Substance: LOTEPREDNOL ETABONATE
     Indication: Ocular hyperaemia
  3. XIIDRA [Suspect]
     Active Substance: LIFITEGRAST
     Indication: Sjogren^s syndrome
     Dosage: 1 DROP IN EACH EYE TWICE DAILY
     Route: 047
     Dates: start: 202406
  4. METOPROLOL [Concomitant]
     Active Substance: METOPROLOL
     Indication: Product used for unknown indication
     Route: 065
  5. PLAVIX [Concomitant]
     Active Substance: CLOPIDOGREL BISULFATE
     Indication: Product used for unknown indication
     Route: 065
  6. HYDROXYCHLOROQUINE DIPHOSPHATE [Concomitant]
     Active Substance: HYDROXYCHLOROQUINE DIPHOSPHATE
     Indication: Product used for unknown indication
     Route: 065
  7. PRAVASTATIN [Concomitant]
     Active Substance: PRAVASTATIN
     Indication: Product used for unknown indication
     Route: 065

REACTIONS (8)
  - Lacrimation increased [Unknown]
  - Ocular hyperaemia [Unknown]
  - Vision blurred [Unknown]
  - Photophobia [Unknown]
  - Intraocular pressure decreased [Recovered/Resolved]
  - Product complaint [Unknown]
  - Product quality issue [Unknown]
  - Drug ineffective [Unknown]

NARRATIVE: CASE EVENT DATE: 20230101
